FAERS Safety Report 4345347-2 (Version None)
Quarter: 2004Q2

REPORT INFORMATION
  Report Type: 
  Country: None (occurrence: None)
  Receive Date: 20040422
  Receipt Date: 20040422
  Transmission Date: 20050107
  Serious: Yes (Death)
  Sender: FDA-Public Use
  Company Number: None

PATIENT
  Age: 82 Year
  Sex: Male
  Weight: 54.4316 kg

DRUGS (1)
  1. MORPHINE [Suspect]
     Indication: PAIN
     Dates: start: 20040224, end: 20040226

REACTIONS (4)
  - DYSPNOEA [None]
  - MEDICATION ERROR [None]
  - OVERDOSE [None]
  - SOMNOLENCE [None]
